FAERS Safety Report 11785637 (Version 1)
Quarter: 2015Q4

REPORT INFORMATION
  Report Type: Report from Study
  Country: NL (occurrence: NL)
  Receive Date: 20151130
  Receipt Date: 20151130
  Transmission Date: 20160305
  Serious: Yes (Death, Other)
  Sender: FDA-Public Use
  Company Number: NL-AMGEN-NLDSL2015124893

PATIENT
  Age: 72 Year
  Sex: Male

DRUGS (1)
  1. XGEVA [Suspect]
     Active Substance: DENOSUMAB
     Indication: BLADDER CANCER
     Dosage: UNK
     Route: 065
     Dates: start: 20140528, end: 201406

REACTIONS (1)
  - Death [Fatal]

NARRATIVE: CASE EVENT DATE: 20150513
